FAERS Safety Report 5599347-5 (Version None)
Quarter: 2008Q1

REPORT INFORMATION
  Report Type: 
  Country: None (occurrence: None)
  Receive Date: 20080117
  Receipt Date: 20080107
  Transmission Date: 20080703
  Serious: Yes (Hospitalization)
  Sender: FDA-Public Use
  Company Number: 2008-00087

PATIENT
  Age: 9 Year
  Sex: Male

DRUGS (10)
  1. PREDNISONE TAB [Suspect]
     Indication: GRAFT VERSUS HOST DISEASE
     Dosage: SEE IMAGE
     Route: 048
  2. METHYLPREDNISOLONE ACETATE [Suspect]
     Indication: GRAFT VERSUS HOST DISEASE
     Dosage: INTRAVENOUS
     Route: 042
  3. CYCLOSPORINE [Suspect]
     Indication: GRAFT VERSUS HOST DISEASE
     Dosage: ORAL
     Route: 048
  4. NIFEDIPINE [Concomitant]
  5. DEXCHLORPHENIRAMINE (DEXCHLORPHENIRAMINE, DEXCHLORPHENIRAMINE) [Concomitant]
  6. SULFAMETHOXAZOLE/TRIMETHOPRIM ^DAK^ [Concomitant]
  7. MEROPENEM (MEROPENEM) [Concomitant]
  8. MORPHINE [Concomitant]
  9. FUROSEMIDE [Concomitant]
  10. METHOTREXATE [Concomitant]

REACTIONS (2)
  - HAEMOLYTIC URAEMIC SYNDROME [None]
  - TOXIC EPIDERMAL NECROLYSIS [None]
